FAERS Safety Report 16307327 (Version 3)
Quarter: 2021Q4

REPORT INFORMATION
  Report Type: Other
  Country: DE (occurrence: None)
  Receive Date: 20190514
  Receipt Date: 20211208
  Transmission Date: 20220303
  Serious: Yes (Hospitalization)
  Sender: FDA-Public Use
  Company Number: DE-ROCHE-2101973

PATIENT
  Age: 46 Year
  Sex: Male

DRUGS (7)
  1. OCREVUS [Suspect]
     Active Substance: OCRELIZUMAB
     Indication: Primary progressive multiple sclerosis
     Dosage: ACC. PRESCRIBING INFORMATION
     Route: 042
     Dates: start: 20180131
  2. OCREVUS [Suspect]
     Active Substance: OCRELIZUMAB
     Dosage: SECOND INFUSION
     Route: 042
     Dates: start: 20180214
  3. DALFAMPRIDINE [Concomitant]
     Active Substance: DALFAMPRIDINE
     Dosage: 1-0-1
  4. DALFAMPRIDINE [Concomitant]
     Active Substance: DALFAMPRIDINE
  5. TAMSULOSIN [Concomitant]
     Active Substance: TAMSULOSIN
  6. CANDESARTAN CILEXETIL [Concomitant]
     Active Substance: CANDESARTAN CILEXETIL
  7. CANDESARTAN CILEXETIL [Concomitant]
     Active Substance: CANDESARTAN CILEXETIL
     Dosage: 1-0-0

REACTIONS (8)
  - Anal incontinence [Recovered/Resolved]
  - Asthenia [Recovered/Resolved]
  - Hypertension [Not Recovered/Not Resolved]
  - General physical health deterioration [Not Recovered/Not Resolved]
  - Atonic urinary bladder [Not Recovered/Not Resolved]
  - Speech disorder [Recovered/Resolved]
  - Urinary tract infection [Not Recovered/Not Resolved]
  - Gait inability [Not Recovered/Not Resolved]

NARRATIVE: CASE EVENT DATE: 20180207
